FAERS Safety Report 9976962 (Version 1)
Quarter: 2014Q1

REPORT INFORMATION
  Report Type: Report from Study
  Country: US (occurrence: US)
  Receive Date: 20140306
  Receipt Date: 20140306
  Transmission Date: 20141002
  Serious: No
  Sender: FDA-Public Use
  Company Number: US-ABBVIE-13P-163-1168353-00

PATIENT
  Age: 51 Year
  Sex: Female

DRUGS (10)
  1. HUMIRA [Suspect]
     Indication: RHEUMATOID ARTHRITIS
     Dosage: INITIAL DOSE
     Dates: start: 20131101
  2. OXYGEN [Concomitant]
     Indication: EMPHYSEMA
     Dosage: 2L PER HOUR PER A PORTABLE TANK AND NASAL CANNULA
  3. PAIN PILL [Concomitant]
     Indication: ARTHRALGIA
     Dosage: 10/325, 4 DAILY
  4. NICOTINE [Concomitant]
     Indication: PRODUCT USED FOR UNKNOWN INDICATION
  5. TRAZODONE [Concomitant]
     Indication: INSOMNIA
     Dosage: 1 TO 2 AT BEDTIME
  6. XANAX [Concomitant]
     Indication: ANXIETY
  7. STEROID [Concomitant]
     Indication: RHEUMATOID ARTHRITIS
  8. GABAPENTIN [Concomitant]
     Indication: PAIN MANAGEMENT
     Dosage: 3 DAILY
  9. CALCIUM D [Concomitant]
     Indication: PRODUCT USED FOR UNKNOWN INDICATION
  10. FOSAMAX [Concomitant]
     Indication: OSTEOPOROSIS
     Dosage: 1 EVERY WEEK

REACTIONS (3)
  - Injection site rash [Recovering/Resolving]
  - Injection site pruritus [Recovering/Resolving]
  - Migraine [Recovering/Resolving]
